FAERS Safety Report 8824915 (Version 1)
Quarter: 2012Q4

REPORT INFORMATION
  Report Type: 
  Country: US (occurrence: US)
  Receive Date: 20121004
  Receipt Date: 20121004
  Transmission Date: 20130627
  Serious: Yes (Hospitalization, Other)
  Sender: FDA-Public Use
  Company Number: US-ROCHE-1135363

PATIENT
  Age: 49 Year
  Sex: Female
  Weight: 57.2 kg

DRUGS (4)
  1. PEGASYS [Suspect]
     Indication: HEPATITIS C
     Route: 058
     Dates: start: 20111111, end: 20120113
  2. COPEGUS [Suspect]
     Indication: HEPATITIS C
     Route: 048
     Dates: start: 20111111, end: 20120113
  3. TELAPREVIR [Suspect]
     Indication: HEPATITIS C
     Route: 048
     Dates: start: 20111111, end: 20120113
  4. PAXIL [Concomitant]
     Indication: DEPRESSION

REACTIONS (12)
  - Paraesthesia [Unknown]
  - Insomnia [Unknown]
  - Hypophagia [Unknown]
  - Blood urine present [Unknown]
  - Haemoglobin decreased [Unknown]
  - Swelling [Unknown]
  - Nausea [Recovered/Resolved]
  - Pain [Recovered/Resolved]
  - Anal pruritus [Recovered/Resolved]
  - Depression [Recovered/Resolved]
  - Rash [Recovered/Resolved]
  - Cystitis haemorrhagic [Recovered/Resolved]
